FAERS Safety Report 24417967 (Version 2)
Quarter: 2024Q4

REPORT INFORMATION
  Report Type: Spontaneous
  Country: US (occurrence: US)
  Receive Date: 20241009
  Receipt Date: 20241226
  Transmission Date: 20250114
  Serious: Yes (Death, Other)
  Sender: BRISTOL-MYERS SQUIBB COMPANY
  Company Number: US-BRISTOL-MYERS SQUIBB COMPANY-2024-159139

PATIENT
  Age: 74 Year
  Sex: Male
  Weight: 63.3 kg

DRUGS (15)
  1. KENALOG [Suspect]
     Active Substance: TRIAMCINOLONE ACETONIDE
     Indication: Product used for unknown indication
     Dates: start: 20240119
  2. OLAPARIB [Suspect]
     Active Substance: OLAPARIB
     Indication: Adenocarcinoma
     Dosage: BID
     Route: 048
     Dates: start: 20230928, end: 20231023
  3. OLAPARIB [Suspect]
     Active Substance: OLAPARIB
     Dosage: UNKNOWN
     Route: 048
     Dates: start: 20240202, end: 20240218
  4. OLAPARIB [Suspect]
     Active Substance: OLAPARIB
     Dosage: BID
     Route: 048
     Dates: start: 20240219, end: 20240314
  5. OLAPARIB [Suspect]
     Active Substance: OLAPARIB
     Dosage: BID
     Route: 048
     Dates: start: 20240315, end: 20240412
  6. OLAPARIB [Suspect]
     Active Substance: OLAPARIB
     Dosage: BID
     Route: 048
     Dates: start: 20240412, end: 20240425
  7. LIPITOR [Concomitant]
     Active Substance: ATORVASTATIN CALCIUM
     Indication: Product used for unknown indication
     Dates: start: 20230825
  8. LISINOPRIL [Concomitant]
     Active Substance: LISINOPRIL
     Indication: Product used for unknown indication
     Dates: start: 20230825
  9. TYLENOL [Concomitant]
     Active Substance: ACETAMINOPHEN
     Indication: Product used for unknown indication
     Dates: start: 20231013
  10. FLOMAX [Concomitant]
     Active Substance: TAMSULOSIN HYDROCHLORIDE
     Indication: Product used for unknown indication
     Dates: start: 20230825
  11. TEMOVATE [Concomitant]
     Active Substance: CLOBETASOL PROPIONATE
     Indication: Product used for unknown indication
     Dates: start: 20231110
  12. OXYCODONE [Concomitant]
     Active Substance: OXYCODONE
     Indication: Product used for unknown indication
     Dates: start: 20240119
  13. IBUPROFEN [Concomitant]
     Active Substance: IBUPROFEN
     Indication: Product used for unknown indication
     Dates: start: 20240119
  14. PREDNISONE [Concomitant]
     Active Substance: PREDNISONE
     Indication: Product used for unknown indication
     Dates: start: 20240223
  15. ELIGARD [Concomitant]
     Active Substance: LEUPROLIDE ACETATE
     Indication: Adenocarcinoma
     Dates: start: 202001

REACTIONS (1)
  - Death [Fatal]

NARRATIVE: CASE EVENT DATE: 20240825
